FAERS Safety Report 18262997 (Version 2)
Quarter: 2020Q4

REPORT INFORMATION
  Report Type: Spontaneous
  Country: AU (occurrence: AU)
  Receive Date: 20200914
  Receipt Date: 20201015
  Transmission Date: 20210113
  Serious: No
  Sender: FDA-Public Use
  Company Number: AU-JNJFOC-20200846441

PATIENT
  Age: 5 Decade
  Sex: Female

DRUGS (1)
  1. SIMPONI [Suspect]
     Active Substance: GOLIMUMAB
     Indication: PRODUCT USED FOR UNKNOWN INDICATION
     Route: 058

REACTIONS (4)
  - Medication error [Unknown]
  - Device deployment issue [Unknown]
  - Complication associated with device [Unknown]
  - Product leakage [Unknown]
